FAERS Safety Report 10563065 (Version 1)
Quarter: 2014Q4

REPORT INFORMATION
  Report Type: Spontaneous
  Country: US (occurrence: None)
  Receive Date: 20141103
  Receipt Date: 20141103
  Transmission Date: 20150529
  Serious: Yes (Life-Threatening, Hospitalization, Disabling)
  Sender: FDA-Public Use
  Company Number: None

PATIENT
  Age: 86 Year
  Sex: Male
  Weight: 74.84 kg

DRUGS (14)
  1. TIMOLOL MALEATE. [Suspect]
     Active Substance: TIMOLOL MALEATE
  2. LUMIGAN [Suspect]
     Active Substance: BIMATOPROST
     Route: 047
  3. PSYLLIUM HUSK [Suspect]
     Active Substance: PSYLLIUM HUSK
     Dosage: 2 CAPSULES
     Route: 048
  4. WARFARIN [Suspect]
     Active Substance: WARFARIN
     Dosage: TAKE UP TO 3 TABLETS, 5 MG WED, 7.5 MG OTHER DAYS OR AS DIRECTED
     Route: 048
  5. NEEDLE LANCETS [Concomitant]
  6. DOXAZOSIN [Suspect]
     Active Substance: DOXAZOSIN\DOXAZOSIN MESYLATE
     Dosage: 1 TABLET
     Route: 048
  7. ZYTIGA [Suspect]
     Active Substance: ABIRATERONE ACETATE
     Indication: PROSTATE CANCER
     Dosage: 250MG X 4 A DAY =1000 MG?4 ?1 A DAY ?MOUTH
     Route: 048
     Dates: start: 20120101, end: 20131219
  8. AMLODIPINE [Suspect]
     Active Substance: AMLODIPINE BESYLATE
     Route: 048
  9. CHOLECALCIFEROL [Suspect]
     Active Substance: CHOLECALCIFEROL
     Dosage: 1 CAPSULE
     Route: 048
  10. INSULIN GLARGINE [Suspect]
     Active Substance: INSULIN GLARGINE
     Dosage: 20 UNITS
     Route: 058
  11. INSULIN PEN [Suspect]
     Active Substance: INSULIN NOS
  12. TORSEMIDE. [Suspect]
     Active Substance: TORSEMIDE
     Dosage: 4 TABLETS BY MOUTH IN THE MORNING
  13. VALSARTAN. [Suspect]
     Active Substance: VALSARTAN
     Dosage: 1 TABLET
     Route: 048
  14. METFORMIN [Suspect]
     Active Substance: METFORMIN HYDROCHLORIDE
     Dosage: 1 TABLET
     Route: 048

REACTIONS (4)
  - Internal haemorrhage [None]
  - Cough [None]
  - Asthenia [None]
  - Diarrhoea [None]

NARRATIVE: CASE EVENT DATE: 20120108
